FAERS Safety Report 7067282-1 (Version None)
Quarter: 2010Q4

REPORT INFORMATION
  Report Type: 
  Country: None (occurrence: None)
  Receive Date: 20101022
  Receipt Date: 20101022
  Transmission Date: 20110411
  Serious: No
  Sender: FDA-Public Use
  Company Number: None

PATIENT
  Sex: Female
  Weight: 65.318 kg

DRUGS (1)
  1. ERYTHROMYCIN OP OINT GM BAUSCH + LOMB [Suspect]
     Indication: DANDRUFF
     Dosage: 4 GM ONCE AT NIGHT OPHTHALMIC
     Route: 047
     Dates: start: 20100908, end: 20100923

REACTIONS (4)
  - EYELID DISORDER [None]
  - PAIN OF SKIN [None]
  - RASH ERYTHEMATOUS [None]
  - SCAB [None]
